FAERS Safety Report 6314124-5 (Version None)
Quarter: 2009Q3

REPORT INFORMATION
  Report Type: 
  Country: None (occurrence: None)
  Receive Date: 20090817
  Receipt Date: 20090804
  Transmission Date: 20100115
  Serious: Yes (Hospitalization)
  Sender: FDA-Public Use
  Company Number: 231614K08USA

PATIENT
  Age: 59 Year
  Sex: Female
  Weight: 111 kg

DRUGS (10)
  1. REBIF [Suspect]
     Indication: MULTIPLE SCLEROSIS
     Dosage: 44 MCG, 3 IN 1 WEEKS, SUBCUTANEOUS
     Route: 058
     Dates: start: 20080324
  2. STEROIDS (CORTICOSTEROID NOS) [Suspect]
     Indication: MULTIPLE SCLEROSIS
     Dosage: INTRAVENOUS (NOT OTHERWISE SPECIFIED)
     Route: 042
     Dates: start: 20081105, end: 20081107
  3. REQUIP [Concomitant]
  4. PROCARDIA XL [Concomitant]
  5. LEXAPRO [Concomitant]
  6. LYSINE (LYSINE) [Concomitant]
  7. NEURONTIN [Concomitant]
  8. ACTONEL [Concomitant]
  9. CALCIUM (CALCIUM-SANDOZ [Concomitant]
  10. ASPIRIN [Concomitant]

REACTIONS (2)
  - PALPITATIONS [None]
  - PULMONARY EMBOLISM [None]
